FAERS Safety Report 5026039-3 (Version None)
Quarter: 2006Q2

REPORT INFORMATION
  Report Type: 
  Country: None (occurrence: None)
  Receive Date: 20060614
  Receipt Date: 20060602
  Transmission Date: 20061013
  Serious: Yes (Hospitalization)
  Sender: FDA-Public Use
  Company Number: FR-BRISTOL-MYERS SQUIBB COMPANY-13407994

PATIENT
  Sex: Male

DRUGS (2)
  1. MODECATE [Suspect]
     Route: 030
  2. ARTANE [Suspect]

REACTIONS (3)
  - HEPATIC FAILURE [None]
  - NEUROLEPTIC MALIGNANT SYNDROME [None]
  - OVERDOSE [None]
